FAERS Safety Report 6626416-0 (Version None)
Quarter: 2010Q1

REPORT INFORMATION
  Report Type: 
  Country: None (occurrence: None)
  Receive Date: 20100310
  Receipt Date: 20100303
  Transmission Date: 20100710
  Serious: Yes (Other)
  Sender: FDA-Public Use
  Company Number: GB-JNJCH-2010005502

PATIENT
  Age: 49 Year
  Sex: Female

DRUGS (1)
  1. SOFTMINT SENSATION LISTERINE [Suspect]
     Indication: DRUG USE FOR UNKNOWN INDICATION
     Dosage: TEXT:TWICE
     Route: 048
     Dates: start: 20100302, end: 20100302

REACTIONS (3)
  - APPLICATION SITE ERYTHEMA [None]
  - APPLICATION SITE EXFOLIATION [None]
  - APPLICATION SITE PAIN [None]
